FAERS Safety Report 6771467-9 (Version None)
Quarter: 2010Q2

REPORT INFORMATION
  Report Type: 
  Country: None (occurrence: None)
  Receive Date: 20100616
  Receipt Date: 20100603
  Transmission Date: 20101027
  Serious: Yes (Other)
  Sender: FDA-Public Use
  Company Number: ES-AMGEN-KDL415360

PATIENT
  Sex: Female

DRUGS (1)
  1. ARANESP [Suspect]
     Indication: RENAL FAILURE CHRONIC
     Route: 058

REACTIONS (3)
  - PRURITUS [None]
  - TYPE IV HYPERSENSITIVITY REACTION [None]
  - URTICARIA [None]
